FAERS Safety Report 25996751 (Version 1)
Quarter: 2025Q4

REPORT INFORMATION
  Report Type: Spontaneous
  Country: BR (occurrence: BR)
  Receive Date: 20251104
  Receipt Date: 20251104
  Transmission Date: 20260118
  Serious: Yes (Hospitalization)
  Sender: BIOGEN
  Company Number: BR-BIOGEN-2088604

PATIENT
  Age: 46 Year
  Sex: Female
  Weight: 75 kg

DRUGS (11)
  1. AVONEX [Suspect]
     Active Substance: INTERFERON BETA-1A
     Indication: Multiple sclerosis
  2. AVONEX [Suspect]
     Active Substance: INTERFERON BETA-1A
  3. AVONEX [Suspect]
     Active Substance: INTERFERON BETA-1A
  4. AVONEX [Suspect]
     Active Substance: INTERFERON BETA-1A
  5. AVONEX [Suspect]
     Active Substance: INTERFERON BETA-1A
  6. ESCITALOPRAM [Concomitant]
     Active Substance: ESCITALOPRAM OXALATE
     Indication: Depression
  7. ALPRAZOLAM [Concomitant]
     Active Substance: ALPRAZOLAM
     Indication: Anxiety
  8. AMLODIPINE [Concomitant]
     Active Substance: AMLODIPINE BESYLATE
     Indication: Product used for unknown indication
  9. PREGABALIN [Concomitant]
     Active Substance: PREGABALIN
     Indication: Product used for unknown indication
  10. DULOXETINE [Concomitant]
     Active Substance: DULOXETINE
     Indication: Product used for unknown indication
  11. Mantidan (Amantadine) [Concomitant]
     Indication: Fatigue

REACTIONS (12)
  - Multiple sclerosis relapse [Unknown]
  - Pain [Unknown]
  - Prescribed underdose [Unknown]
  - Bone pain [Unknown]
  - Pyrexia [Unknown]
  - Weight increased [Unknown]
  - Myalgia [Unknown]
  - Hypertension [Unknown]
  - Malaise [Unknown]
  - Gait inability [Unknown]
  - Pain in extremity [Unknown]
  - Injection site pain [Unknown]
